FAERS Safety Report 10230395 (Version 1)
Quarter: 2014Q2

REPORT INFORMATION
  Report Type: Spontaneous
  Country: US (occurrence: US)
  Receive Date: 20140611
  Receipt Date: 20140611
  Transmission Date: 20141212
  Serious: No
  Sender: FDA-Public Use
  Company Number: US-INCYTE CORPORATION-2014IN000481

PATIENT
  Sex: Female
  Weight: 58.5 kg

DRUGS (16)
  1. JAKAFI [Suspect]
     Indication: MYELOFIBROSIS
     Dosage: 5 MG, QD
     Route: 048
     Dates: start: 20120131
  2. CALCIUM [Concomitant]
  3. MAG-OX [Concomitant]
  4. MULTIVITAMIN                       /00097801/ [Concomitant]
  5. VITAMIN D                          /00107901/ [Concomitant]
  6. ALLOPURINOL [Concomitant]
  7. CIPROFLOXACIN [Concomitant]
  8. FUROSEMIDE [Concomitant]
  9. LEVOTHYROXINE [Concomitant]
  10. OMEPRAZOLE [Concomitant]
  11. ZOFRAN                             /00955301/ [Concomitant]
  12. PHOSPHA [Concomitant]
  13. MIRALAX                            /00754501/ [Concomitant]
  14. SPIRONOLACTONE [Concomitant]
  15. URSODIOL [Concomitant]
  16. XIFAXAN [Concomitant]

REACTIONS (2)
  - Peripheral swelling [Unknown]
  - Dry mouth [Unknown]
